FAERS Safety Report 9012288 (Version 1)
Quarter: 2012Q4

REPORT INFORMATION
  Report Type: Spontaneous
  Country: US (occurrence: None)
  Receive Date: 20121231
  Receipt Date: 20121231
  Transmission Date: 20130627
  Serious: Yes (Other)
  Sender: FDA-Public Use
  Company Number: KAD201212-000538

PATIENT
  Sex: Female

DRUGS (2)
  1. TOPOTECAN (TOPOTECAN) [Suspect]
  2. SORAFENIB [Suspect]

REACTIONS (10)
  - Leukopenia [None]
  - Neutropenia [None]
  - Thrombocytopenia [None]
  - Anaemia [None]
  - Fatigue [None]
  - Nausea [None]
  - Vomiting [None]
  - Palmar-plantar erythrodysaesthesia syndrome [None]
  - Toxicity to various agents [None]
  - Drug effect decreased [None]
